FAERS Safety Report 21678582 (Version 4)
Quarter: 2022Q4

REPORT INFORMATION
  Report Type: Report from Study
  Country: US (occurrence: US)
  Receive Date: 20221203
  Receipt Date: 20221219
  Transmission Date: 20230113
  Serious: No
  Sender: FDA-Public Use
  Company Number: US-002147023-NVSC2022US280980

PATIENT
  Sex: Female

DRUGS (2)
  1. ENTRESTO [Suspect]
     Active Substance: SACUBITRIL\VALSARTAN
     Indication: Cardiac failure
     Dosage: 1 DOSAGE FORM, BID (DISPERSIBLE TABLET)
     Route: 048
     Dates: start: 20221109
  2. ENTRESTO [Suspect]
     Active Substance: SACUBITRIL\VALSARTAN
     Dosage: 1 DOSAGE FORM, QD (DECREASED DOSE TO ONCE A DAY)
     Route: 048

REACTIONS (3)
  - Blood potassium increased [Unknown]
  - Pruritus [Unknown]
  - Product use issue [Unknown]
